FAERS Safety Report 6804457-8 (Version None)
Quarter: 2010Q2

REPORT INFORMATION
  Report Type: 
  Country: None (occurrence: None)
  Receive Date: 20100628
  Receipt Date: 20100628
  Transmission Date: 20101027
  Serious: No
  Sender: FDA-Public Use
  Company Number: None

PATIENT
  Age: 11 Year
  Sex: Female
  Weight: 53.978 kg

DRUGS (1)
  1. VIGAMOX [Suspect]
     Indication: CONJUNCTIVITIS INFECTIVE
     Dosage: ONE DROP 3X A DAY INTRAOCULAR
     Route: 031
     Dates: start: 20100624, end: 20100627

REACTIONS (4)
  - EYE SWELLING [None]
  - OCULAR HYPERAEMIA [None]
  - PYREXIA [None]
  - VOMITING [None]
